FAERS Safety Report 16802313 (Version 4)
Quarter: 2020Q1

REPORT INFORMATION
  Report Type: Spontaneous
  Country: US (occurrence: US)
  Receive Date: 20190912
  Receipt Date: 20200121
  Transmission Date: 20200409
  Serious: No
  Sender: FDA-Public Use
  Company Number: US-SA-2019SA253227

PATIENT
  Age: 52 Year
  Sex: Female
  Weight: 131.99 kg

DRUGS (58)
  1. FABRAZYME [Suspect]
     Active Substance: AGALSIDASE BETA
     Dosage: 130 MG, QOW
     Route: 042
     Dates: start: 20190509
  2. RESTASIS [Concomitant]
     Active Substance: CYCLOSPORINE
     Dosage: 0.05, BID BOTH EYES
     Dates: start: 20190827
  3. STERILE WATER [Concomitant]
     Active Substance: WATER
     Dosage: 1 EACH, UNK (RECONSTITUTION)
     Route: 042
     Dates: start: 20191111
  4. SINGULAIR [Concomitant]
     Active Substance: MONTELUKAST SODIUM
     Dosage: 10 MG, QD
     Route: 048
  5. PROAIR HFA [Concomitant]
     Active Substance: ALBUTEROL SULFATE
     Dosage: 1 PUFF,QD
     Route: 048
     Dates: start: 20190404
  6. METFORMIN [Concomitant]
     Active Substance: METFORMIN HYDROCHLORIDE
     Dosage: 2 DF, QD
     Route: 048
  7. FAMOTIDINE. [Concomitant]
     Active Substance: FAMOTIDINE
     Dosage: 20 MG, QD
     Route: 048
     Dates: start: 20190823
  8. FAMOTIDINE. [Concomitant]
     Active Substance: FAMOTIDINE
     Dosage: 20 MG, QD
     Route: 048
     Dates: start: 20191111
  9. ONDANSETRON [Concomitant]
     Active Substance: ONDANSETRON
     Dosage: 4 MG, PRN
     Route: 048
     Dates: start: 20191111
  10. PAZEO [Concomitant]
     Active Substance: OLOPATADINE HYDROCHLORIDE
     Dosage: DAILY PRN,1 GTT, BOTH EYES
     Route: 031
     Dates: start: 20190430
  11. OMEPRAZOLE AND SODIUM BICARBONATE [Concomitant]
     Active Substance: OMEPRAZOLE\SODIUM BICARBONATE
     Dosage: 1 DF, BID (40 MG)
     Route: 048
     Dates: start: 20190404
  12. SPIRIVA [Concomitant]
     Active Substance: TIOTROPIUM BROMIDE MONOHYDRATE
     Dosage: 1 PUFF, QD
     Route: 048
     Dates: start: 20190404
  13. EPINEPHRINE. [Concomitant]
     Active Substance: EPINEPHRINE
     Dosage: 0.3 MG, PRN
     Route: 030
     Dates: start: 20190823
  14. PREVNAR 13 [Concomitant]
     Active Substance: PNEUMOCOCCAL 13-VALENT CONJUGATE VACCINE
     Dosage: 0.5 ML, YEARLY
     Route: 030
     Dates: start: 20190820
  15. GARCINIA CAMBOGIA [GARCINIA GUMMI-GUTTA] [Concomitant]
     Dosage: 400 MG, QD
     Route: 048
     Dates: start: 20190430
  16. ZYRTEC [Concomitant]
     Active Substance: CETIRIZINE HYDROCHLORIDE
     Dosage: 1 DF, QD
     Route: 048
     Dates: start: 20190404
  17. VITAMIN D3 [Concomitant]
     Active Substance: CHOLECALCIFEROL
     Dosage: 1 DF, QD
     Route: 048
     Dates: start: 20190430
  18. VITAMIN D3 [Concomitant]
     Active Substance: CHOLECALCIFEROL
     Dosage: 1 DF, QD
     Route: 048
     Dates: start: 20190404
  19. GABAPENTIN. [Concomitant]
     Active Substance: GABAPENTIN
     Dosage: 1 CAP, BID
     Route: 048
     Dates: start: 20190430
  20. HEPARIN [Concomitant]
     Active Substance: HEPARIN SODIUM
     Dosage: 100 IU/ML, UNK
     Route: 042
     Dates: start: 20190823
  21. SODIUM CHLORIDE. [Concomitant]
     Active Substance: SODIUM CHLORIDE
     Dosage: 0.9 %, UNK (FLUSH)
     Route: 042
     Dates: start: 20191111
  22. CYCLOBENZAPRINE. [Concomitant]
     Active Substance: CYCLOBENZAPRINE
     Dosage: 10 MG, TID
     Route: 048
     Dates: start: 20190913
  23. OMEPRAZOLE AND SODIUM BICARBONATE [Concomitant]
     Active Substance: OMEPRAZOLE\SODIUM BICARBONATE
     Dosage: 1 DF, BID (40 MG)
     Route: 048
     Dates: start: 20190430
  24. GEODON [ZIPRASIDONE HYDROCHLORIDE] [Concomitant]
     Dosage: 2 DF, QD
     Route: 048
     Dates: start: 20190404
  25. GABAPENTIN. [Concomitant]
     Active Substance: GABAPENTIN
     Dosage: 1 CAP, BID
     Route: 048
     Dates: start: 20190430
  26. FLUBLOK [Concomitant]
     Active Substance: INFLUENZA A VIRUS A/CALIFORNIA/7/2009 (H1N1) RECOMBINANT HEMAGGLUTININ ANTIGEN\INFLUENZA A VIRUS A/VICTORIA/361/2011 (H3N2) RECOMBINANT HEMAGGLUTININ ANTIGEN\INFLUENZA B VIRUS B/WISCONSIN/1/2010 RECOMBINANT HEMAGGLUTININ ANTIGEN
     Dosage: 180 MG, Q12D
     Route: 030
     Dates: start: 20191010
  27. METFORMIN [Concomitant]
     Active Substance: METFORMIN HYDROCHLORIDE
     Dosage: 2 DF, BID
     Route: 048
     Dates: start: 20190404
  28. AMITRIPTYLINE [Concomitant]
     Active Substance: AMITRIPTYLINE
     Dosage: 1 DF, HS
     Route: 048
     Dates: start: 20190404
  29. SOLU-MEDROL [Concomitant]
     Active Substance: METHYLPREDNISOLONE SODIUM SUCCINATE
     Dosage: 125 MG, UNK (AS DIRECTED)
     Route: 042
     Dates: start: 20191111
  30. ACETAMINOPHEN. [Concomitant]
     Active Substance: ACETAMINOPHEN
     Dosage: 1 DF
     Route: 048
     Dates: start: 20191111
  31. SODIUM CHLORIDE. [Concomitant]
     Active Substance: SODIUM CHLORIDE
     Dosage: 0.9 %, UNK (FLUSH)
     Route: 042
     Dates: start: 20190823
  32. LISINOPRIL. [Concomitant]
     Active Substance: LISINOPRIL
     Dosage: 1 DF, QD
     Route: 048
     Dates: start: 20190430
  33. LISINOPRIL. [Concomitant]
     Active Substance: LISINOPRIL
     Dosage: 1 DF, QD
     Route: 048
     Dates: start: 20190404
  34. SUMATRIPTAN. [Concomitant]
     Active Substance: SUMATRIPTAN
     Dosage: 1 DF, PRN
     Route: 048
     Dates: start: 20191119
  35. FABRAZYME [Suspect]
     Active Substance: AGALSIDASE BETA
     Indication: FABRY^S DISEASE
     Dosage: 110 MG, QOW
     Route: 041
     Dates: start: 20190422
  36. RESTASIS [Concomitant]
     Active Substance: CYCLOSPORINE
     Dosage: 0.05, BID BOTH EYES
     Route: 031
     Dates: start: 20190820
  37. DIPHENHYDRAMINE. [Concomitant]
     Active Substance: DIPHENHYDRAMINE
     Dosage: 50 MG, PRN
     Route: 042
     Dates: start: 20190827
  38. ACETAMINOPHEN. [Concomitant]
     Active Substance: ACETAMINOPHEN
     Dosage: 500 MG, PRN
     Route: 048
     Dates: start: 20190823
  39. CYCLOBENZAPRINE. [Concomitant]
     Active Substance: CYCLOBENZAPRINE
     Dosage: 1 DF, HS
     Route: 048
     Dates: start: 20190726
  40. IRON [Concomitant]
     Active Substance: IRON
     Dosage: 1 DF, QD
     Route: 048
     Dates: start: 20190404
  41. DIPHENHYDRAMINE. [Concomitant]
     Active Substance: DIPHENHYDRAMINE
     Dosage: 50 MG, PRN
     Route: 042
     Dates: start: 20191111
  42. HEPARIN [Concomitant]
     Active Substance: HEPARIN SODIUM
     Dosage: 100 IU/ML, UNK
     Route: 042
     Dates: start: 20191111
  43. NORMAL SALINE [Concomitant]
     Active Substance: SODIUM CHLORIDE
     Dosage: 0.9 %, UNK (DILUTION)
     Route: 042
     Dates: start: 20190823
  44. NORMAL SALINE [Concomitant]
     Active Substance: SODIUM CHLORIDE
     Dosage: 0.9 %, UNK (DILUTION)
     Route: 042
     Dates: start: 20191111
  45. STERILE WATER [Concomitant]
     Active Substance: WATER
     Dosage: 1 EACH, UNK (RECONSTITUTION)
     Route: 042
     Dates: start: 20190823
  46. EPINEPHRINE. [Concomitant]
     Active Substance: EPINEPHRINE
     Dosage: 0.3 MG, PRN
     Route: 030
     Dates: start: 20191111
  47. BUTALBITAL, ACETAMINOPHEN, AND CAFFEINE [Concomitant]
     Active Substance: ACETAMINOPHEN\BUTALBITAL\CAFFEINE
     Dosage: 1 DF, BIW
     Route: 048
     Dates: start: 20190726
  48. GAS-X [Concomitant]
     Active Substance: DIMETHICONE
     Dosage: 1 DF, PRN (DAILY)
     Route: 048
     Dates: start: 20190430
  49. SINGULAIR [Concomitant]
     Active Substance: MONTELUKAST SODIUM
     Dosage: 1 DF, BID
     Route: 048
     Dates: start: 20190430
  50. ZYRTEC [Concomitant]
     Active Substance: CETIRIZINE HYDROCHLORIDE
     Dosage: 1 DF, QD
     Route: 048
     Dates: start: 20190430
  51. ONDANSETRON [Concomitant]
     Active Substance: ONDANSETRON
     Dosage: 4 MG, PRN
     Route: 048
     Dates: start: 20190823
  52. FLUBLOK QUADRIVALENT [Concomitant]
     Dosage: 180 UG, YEARLY
     Route: 030
     Dates: start: 20190820
  53. METHOCARBAMOL. [Concomitant]
     Active Substance: METHOCARBAMOL
     Dosage: 1000 MG, QID
     Route: 048
     Dates: start: 20190820
  54. MIRTAZAPINE. [Concomitant]
     Active Substance: MIRTAZAPINE
     Dosage: 1 DF, HS
     Route: 048
     Dates: start: 20190430
  55. DOCUSATE [Concomitant]
     Active Substance: DOCUSATE
     Dosage: 100 MG, PRN
     Route: 048
     Dates: start: 20190430
  56. GEODON [ZIPRASIDONE HYDROCHLORIDE] [Concomitant]
     Dosage: 2 DF, QD
     Route: 048
     Dates: start: 20190430
  57. PROAIR HFA [Concomitant]
     Active Substance: ALBUTEROL SULFATE
     Dosage: 1 PUFF,QD
     Route: 048
     Dates: start: 20190430
  58. SPIRIVA [Concomitant]
     Active Substance: TIOTROPIUM BROMIDE MONOHYDRATE
     Dosage: 1 PUFF, QD
     Route: 055

REACTIONS (2)
  - Pruritus [Recovered/Resolved]
  - Nausea [Unknown]
